FAERS Safety Report 16181248 (Version 2)
Quarter: 2019Q2

REPORT INFORMATION
  Report Type: Spontaneous
  Country: US (occurrence: US)
  Receive Date: 20190410
  Receipt Date: 20190507
  Transmission Date: 20190711
  Serious: Yes (Hospitalization, Other)
  Sender: FDA-Public Use
  Company Number: US-GLAXOSMITHKLINE-US2019061072

PATIENT
  Age: 74 Year
  Sex: Female
  Weight: 72.11 kg

DRUGS (1)
  1. NUCALA [Suspect]
     Active Substance: MEPOLIZUMAB
     Indication: ASTHMA
     Dosage: UNK
     Route: 058
     Dates: start: 20180801, end: 20190329

REACTIONS (7)
  - Abdominal pain [Not Recovered/Not Resolved]
  - Product dose omission [Unknown]
  - Injection site mass [Not Recovered/Not Resolved]
  - Hospitalisation [Unknown]
  - Fatigue [Not Recovered/Not Resolved]
  - Nausea [Not Recovered/Not Resolved]
  - Injection site rash [Unknown]

NARRATIVE: CASE EVENT DATE: 201808
